FAERS Safety Report 9548120 (Version 1)
Quarter: 2013Q3

REPORT INFORMATION
  Report Type: Spontaneous
  Country: None (occurrence: None)
  Receive Date: 20130920
  Receipt Date: 20130920
  Transmission Date: 20140515
  Serious: Yes (Other)
  Sender: FDA-Public Use
  Company Number: 151311

PATIENT
  Age: 18 Year
  Sex: Female

DRUGS (1)
  1. CYCLOSPORINE [Suspect]
     Indication: BONE MARROW TRANSPLANT
     Dosage: 3.57MG/KG/DAY (USUAL DOSE IS 2.5MG/KG)

REACTIONS (2)
  - Accidental overdose [None]
  - Grand mal convulsion [None]
